FAERS Safety Report 4712663-1 (Version None)
Quarter: 2005Q3

REPORT INFORMATION
  Report Type: 
  Country: None (occurrence: None)
  Receive Date: 20050706
  Receipt Date: 20050222
  Transmission Date: 20060218
  Serious: Yes (Other)
  Sender: FDA-Public Use
  Company Number: US-2004-031593

PATIENT

DRUGS (1)
  1. CAMPATH [Suspect]
     Indication: APLASTIC ANAEMIA

REACTIONS (1)
  - SINUSITIS FUNGAL [None]
